FAERS Safety Report 23374932 (Version 1)
Quarter: 2024Q1

REPORT INFORMATION
  Report Type: Spontaneous
  Country: FR (occurrence: FR)
  Receive Date: 20240106
  Receipt Date: 20240106
  Transmission Date: 20240410
  Serious: Yes (Other)
  Sender: FDA-Public Use
  Company Number: FR-AFSSAPS-DJ2023001537

PATIENT
  Age: 85 Year
  Sex: Female
  Weight: 67 kg

DRUGS (2)
  1. LEVOFLOXACIN [Suspect]
     Active Substance: LEVOFLOXACIN
     Indication: Device related infection
     Dosage: 750 MILLIGRAM, ONCE A DAY
     Route: 048
     Dates: start: 20230921, end: 20231110
  2. RIFAMPIN [Concomitant]
     Active Substance: RIFAMPIN
     Indication: Device related infection
     Dosage: 900 MILLIGRAM, ONCE A DAY
     Route: 048
     Dates: start: 20230917

REACTIONS (1)
  - Musculoskeletal pain [Recovering/Resolving]

NARRATIVE: CASE EVENT DATE: 20231001
